FAERS Safety Report 7790033-X (Version None)
Quarter: 2011Q3

REPORT INFORMATION
  Report Type: 
  Country: None (occurrence: None)
  Receive Date: 20110930
  Receipt Date: 20110721
  Transmission Date: 20111222
  Serious: No
  Sender: FDA-Public Use
  Company Number: US-ASTRAZENECA-2011SE28525

PATIENT
  Age: 57 Year
  Sex: Female

DRUGS (2)
  1. ARIMIDEX [Suspect]
     Route: 048
  2. UNKNOWN [Interacting]
     Route: 065

REACTIONS (3)
  - DRUG INTERACTION [None]
  - RHEUMATOID ARTHRITIS [None]
  - ORAL CANDIDIASIS [None]
